FAERS Safety Report 5767917-7 (Version None)
Quarter: 2008Q2

REPORT INFORMATION
  Report Type: 
  Country: None (occurrence: None)
  Receive Date: 20080612
  Receipt Date: 20080602
  Transmission Date: 20081010
  Serious: Yes (Other)
  Sender: FDA-Public Use
  Company Number: DE-PFIZER INC-2008047048

PATIENT
  Age: 4 Year
  Sex: Male

DRUGS (1)
  1. TRANEXAMIC ACID (IV) [Suspect]
     Indication: POST PROCEDURAL HAEMORRHAGE
     Route: 042

REACTIONS (1)
  - EXTRAVASATION [None]
